FAERS Safety Report 8960186 (Version 2)
Quarter: 2012Q4

REPORT INFORMATION
  Report Type: 
  Country: US (occurrence: US)
  Receive Date: 20121211
  Receipt Date: 20121221
  Transmission Date: 20130627
  Serious: Yes (Hospitalization)
  Sender: FDA-Public Use
  Company Number: US-US-EMD SERONO, INC.-7019750

PATIENT
  Age: 30 Year
  Sex: Female
  Weight: 73 kg

DRUGS (5)
  1. REBIF [Suspect]
     Indication: MULTIPLE SCLEROSIS
     Route: 058
     Dates: start: 200501, end: 200603
  2. REBIF [Suspect]
     Dates: start: 20090811, end: 20100201
  3. REBIF [Suspect]
     Dates: start: 20101015
  4. REBIF [Suspect]
     Dates: start: 2006
  5. MIRAPEX [Concomitant]
     Indication: MULTIPLE SCLEROSIS
     Dates: start: 200501

REACTIONS (5)
  - Infection [Recovered/Resolved]
  - Premature delivery [Recovered/Resolved]
  - Injection site bruising [Unknown]
  - Normal newborn [Recovered/Resolved]
  - Maternal exposure timing unspecified [Recovered/Resolved]
